FAERS Safety Report 18417626 (Version 1)
Quarter: 2020Q4

REPORT INFORMATION
  Report Type: Spontaneous
  Country: US (occurrence: US)
  Receive Date: 20201022
  Receipt Date: 20201022
  Transmission Date: 20210114
  Serious: No
  Sender: FDA-Public Use
  Company Number: US-SEATTLE GENETICS-2020SGN03526

PATIENT
  Sex: Female

DRUGS (2)
  1. XELODA [Concomitant]
     Active Substance: CAPECITABINE
     Indication: BREAST CANCER FEMALE
  2. TUKYSA [Suspect]
     Active Substance: TUCATINIB
     Indication: BREAST CANCER FEMALE
     Dosage: UNK, BID

REACTIONS (14)
  - Decreased appetite [Unknown]
  - Central nervous system lesion [Unknown]
  - Unevaluable event [Unknown]
  - Stress [Unknown]
  - Taste disorder [Unknown]
  - Dehydration [Unknown]
  - Nausea [Unknown]
  - Fatigue [Unknown]
  - Emotional disorder [Unknown]
  - Anxiety [Unknown]
  - Diarrhoea [Unknown]
  - Amnesia [Unknown]
  - Neoplasm progression [Unknown]
  - Vomiting [Unknown]
